FAERS Safety Report 16251216 (Version 2)
Quarter: 2019Q2

REPORT INFORMATION
  Report Type: Spontaneous
  Country: US (occurrence: US)
  Receive Date: 20190429
  Receipt Date: 20190521
  Transmission Date: 20190711
  Serious: Yes (Other)
  Sender: FDA-Public Use
  Company Number: US-PFIZER INC-2017149935

PATIENT
  Age: 32 Year
  Sex: Male
  Weight: 95 kg

DRUGS (6)
  1. ZONISAMIDE. [Concomitant]
     Active Substance: ZONISAMIDE
     Indication: EPILEPSY
     Dosage: 300 MG, 1X/DAY, (TAKES 3 CAPSULES BY MOUTH AT BEDTIME)
     Route: 048
     Dates: start: 20190218
  2. LAMICTAL [Concomitant]
     Active Substance: LAMOTRIGINE
     Indication: GENERALISED TONIC-CLONIC SEIZURE
     Dosage: 350 MG, DAILY (THREE TABLET IN MORNING, ONE IN AFTERNOON AND THREE TABLET AT BEDTIME)
  3. LYRICA [Suspect]
     Active Substance: PREGABALIN
     Dosage: 1200 MG, DAILY (4 CAPSULES, THREE TIMES DAILY)
     Route: 048
     Dates: start: 2012
  4. LAMICTAL [Concomitant]
     Active Substance: LAMOTRIGINE
     Indication: EPILEPSY
     Dosage: 700 MG, DAILY (300MG IN THE MORNING, 400MG AT BEDTIME)
     Dates: start: 1996
  5. LYRICA [Suspect]
     Active Substance: PREGABALIN
     Indication: EPILEPSY
     Dosage: 300 MG, 3X/DAY
  6. LYRICA [Suspect]
     Active Substance: PREGABALIN
     Dosage: 1 DF, 2X/DAY (1 CAPSULE IN THE MORNING AND 1 AT BEDTIME)

REACTIONS (3)
  - Drug dependence [Not Recovered/Not Resolved]
  - Prescribed overdose [Unknown]
  - Intentional product use issue [Unknown]

NARRATIVE: CASE EVENT DATE: 20190405
